FAERS Safety Report 24745375 (Version 3)
Quarter: 2025Q1

REPORT INFORMATION
  Report Type: Report from Study
  Country: DE (occurrence: DE)
  Receive Date: 20241217
  Receipt Date: 20250106
  Transmission Date: 20250409
  Serious: Yes (Hospitalization, Other)
  Sender: TAKEDA
  Company Number: DE-JNJFOC-20241242009

PATIENT
  Age: 9 Decade
  Sex: Female
  Weight: 57 kg

DRUGS (2)
  1. BORTEZOMIB [Suspect]
     Active Substance: BORTEZOMIB
     Indication: Plasma cell myeloma
  2. DARZALEX [Suspect]
     Active Substance: DARATUMUMAB
     Indication: Plasma cell myeloma
     Dates: start: 20210628, end: 20210628

REACTIONS (1)
  - Haematological neoplasm [Not Recovered/Not Resolved]

NARRATIVE: CASE EVENT DATE: 20240709
